FAERS Safety Report 5091731-1 (Version None)
Quarter: 2006Q3

REPORT INFORMATION
  Report Type: 
  Country: None (occurrence: None)
  Receive Date: 20060824
  Receipt Date: 20060814
  Transmission Date: 20061208
  Serious: Yes (Death)
  Sender: FDA-Public Use
  Company Number: 2006-DE-04254GD

PATIENT
  Age: 18 Year
  Sex: Male

DRUGS (7)
  1. SERTRALINE [Suspect]
     Indication: MAJOR DEPRESSION
  2. OXAZEPAM [Suspect]
     Indication: MAJOR DEPRESSION
  3. CYAMEMAZINE (CYAMEMAZINE) [Suspect]
     Indication: MAJOR DEPRESSION
  4. TIANEPTINE (TIANEPTINE) [Suspect]
     Indication: DEPRESSION
  5. TIANEPTINE (TIANEPTINE) [Suspect]
     Indication: INSOMNIA
  6. LOPRAZOLAM (LOPRAZOLAM) [Suspect]
     Indication: DEPRESSION
  7. LOPRAZOLAM (LOPRAZOLAM) [Suspect]
     Indication: INSOMNIA

REACTIONS (17)
  - ANXIETY [None]
  - CATATONIA [None]
  - CONDITION AGGRAVATED [None]
  - DISORIENTATION [None]
  - DYSARTHRIA [None]
  - DYSMORPHOPHOBIA [None]
  - DYSPNOEA [None]
  - ELECTROENCEPHALOGRAM ABNORMAL [None]
  - HALLUCINATIONS, MIXED [None]
  - INSOMNIA [None]
  - MAJOR DEPRESSION [None]
  - MYOCLONUS [None]
  - PERSECUTORY DELUSION [None]
  - PYRAMIDAL TRACT SYNDROME [None]
  - PYREXIA [None]
  - TACHYCARDIA [None]
  - THINKING ABNORMAL [None]
